FAERS Safety Report 8301014-1 (Version None)
Quarter: 2012Q2

REPORT INFORMATION
  Report Type: 
  Country: None (occurrence: None)
  Receive Date: 20120420
  Receipt Date: 20120413
  Transmission Date: 20120825
  Serious: Yes (Other)
  Sender: FDA-Public Use
  Company Number: ES-AMGEN-ESPSP2011054450

PATIENT
  Age: 33 Year
  Sex: Female
  Weight: 78.957 kg

DRUGS (4)
  1. CINACALCET HYDROCHLORIDE [Suspect]
     Indication: HYPERPARATHYROIDISM SECONDARY
     Dosage: 30 MG, QD
     Route: 048
     Dates: start: 20100329, end: 20101105
  2. FOLIC ACID W/VITAMIN B NOS [Concomitant]
     Dosage: 5 MG, QD
     Route: 048
     Dates: start: 20100915, end: 20110722
  3. IODINE [Concomitant]
     Dosage: 200 MG, QD
     Route: 048
     Dates: start: 20101117, end: 20110627
  4. CINACALCET HYDROCHLORIDE [Suspect]
     Dosage: 15 MG, QD
     Route: 048
     Dates: start: 20101105, end: 20101123

REACTIONS (5)
  - PLACENTA PRAEVIA [None]
  - PREMATURE DELIVERY [None]
  - PREGNANCY [None]
  - GESTATIONAL HYPERTENSION [None]
  - PLACENTA PRAEVIA HAEMORRHAGE [None]
